FAERS Safety Report 17404290 (Version 1)
Quarter: 2020Q1

REPORT INFORMATION
  Report Type: Report from Study
  Country: US (occurrence: US)
  Receive Date: 20200211
  Receipt Date: 20200211
  Transmission Date: 20200409
  Serious: Yes (Other)
  Sender: FDA-Public Use
  Company Number: NVSC2020US032266

PATIENT
  Sex: Male

DRUGS (1)
  1. ENTRESTO [Suspect]
     Active Substance: SACUBITRIL\VALSARTAN
     Indication: CARDIAC FAILURE
     Dosage: 100 MG, BID
     Route: 048
     Dates: start: 2016

REACTIONS (5)
  - Oedema peripheral [Unknown]
  - Brain neoplasm [Unknown]
  - Dizziness [Unknown]
  - Weight increased [Unknown]
  - Hypotension [Unknown]

NARRATIVE: CASE EVENT DATE: 2016
